FAERS Safety Report 7635956-7 (Version None)
Quarter: 2011Q3

REPORT INFORMATION
  Report Type: 
  Country: None (occurrence: None)
  Receive Date: 20110726
  Receipt Date: 20110712
  Transmission Date: 20111222
  Serious: Yes (Other)
  Sender: FDA-Public Use
  Company Number: US-BAYER-2011-061000

PATIENT
  Age: 79 Year
  Sex: Male
  Weight: 110.66 kg

DRUGS (5)
  1. ACTOS [Concomitant]
     Indication: TYPE 2 DIABETES MELLITUS
     Dosage: DAILY DOSE 30 MG
     Route: 048
  2. ACETAMINOPHEN [Concomitant]
     Indication: ARTHRITIS
     Dosage: DAILY DOSE 2 DF
     Route: 048
  3. ASPIRIN [Suspect]
     Dosage: UNK
     Dates: start: 20080101, end: 20100101
  4. LYRICA [Suspect]
     Indication: NERVE INJURY
     Dosage: 100 MG, QD
     Route: 048
     Dates: start: 20100101, end: 20110601
  5. LYRICA [Suspect]
     Dosage: 100 MG, BID
     Route: 048
     Dates: start: 20110601

REACTIONS (2)
  - SKIN HAEMORRHAGE [None]
  - ERYTHEMA [None]
